FAERS Safety Report 16354522 (Version 3)
Quarter: 2020Q2

REPORT INFORMATION
  Report Type: Spontaneous
  Country: CA (occurrence: CA)
  Receive Date: 20190524
  Receipt Date: 20200424
  Transmission Date: 20200713
  Serious: Yes (Hospitalization)
  Sender: FDA-Public Use
  Company Number: CA-OTSUKA-2019_020440

PATIENT
  Age: 15 Year
  Sex: Female
  Weight: 57 kg

DRUGS (10)
  1. BRENTUXIMAB VEDOTIN [Concomitant]
     Active Substance: BRENTUXIMAB VEDOTIN
     Indication: PRODUCT USED FOR UNKNOWN INDICATION
     Dosage: 55-65 MG/M2 (AS PER PROTOCOL)
     Route: 042
     Dates: start: 20171109, end: 20180704
  2. GEMCITABINE HYDROCHLORIDE. [Suspect]
     Active Substance: GEMCITABINE HYDROCHLORIDE
     Dosage: 2775 MG/M2, QD
     Route: 042
  3. GEMCITABINE HYDROCHLORIDE. [Suspect]
     Active Substance: GEMCITABINE HYDROCHLORIDE
     Dosage: 1000 MG/M2, QD
     Route: 042
  4. GEMCITABINE HYDROCHLORIDE. [Suspect]
     Active Substance: GEMCITABINE HYDROCHLORIDE
     Indication: HODGKIN^S DISEASE
     Dosage: 1000 MG/M2, QD
     Route: 042
  5. GEMCITABINE HYDROCHLORIDE. [Suspect]
     Active Substance: GEMCITABINE HYDROCHLORIDE
     Dosage: 1000 MG/M2, QD
     Route: 042
  6. DEXAMETHASONE. [Concomitant]
     Active Substance: DEXAMETHASONE
     Indication: PRODUCT USED FOR UNKNOWN INDICATION
     Dosage: 2.5-6.5MG/M2 (1-2 TIMES/DAY AS PER PROTOCOL: PO/IV)
     Route: 065
     Dates: start: 20170828, end: 20171229
  7. BUSULFAN. [Suspect]
     Active Substance: BUSULFAN
     Indication: HODGKIN^S DISEASE
     Dosage: 110 MG/M2, QD (1 EVERY 1 DAY(S)
     Route: 042
     Dates: start: 20171210, end: 20171213
  8. GEMCITABINE HYDROCHLORIDE. [Suspect]
     Active Substance: GEMCITABINE HYDROCHLORIDE
     Dosage: 1000 MG/M2, QD
     Route: 042
  9. GEMCITABINE HYDROCHLORIDE. [Suspect]
     Active Substance: GEMCITABINE HYDROCHLORIDE
     Dosage: 2775 MG/M2, QD
     Route: 042
  10. MELPHALAN. [Suspect]
     Active Substance: MELPHALAN
     Indication: HODGKIN^S DISEASE
     Dosage: 60 MG/M2, QD
     Route: 042

REACTIONS (5)
  - Erythema [Recovered/Resolved]
  - Mucosal inflammation [Recovered/Resolved]
  - Product use in unapproved indication [Unknown]
  - Neoplasm progression [Recovered/Resolved]
  - Off label use [Unknown]

NARRATIVE: CASE EVENT DATE: 20171214
